FAERS Safety Report 15409835 (Version 2)
Quarter: 2018Q4

REPORT INFORMATION
  Report Type: Spontaneous
  Country: ES (occurrence: ES)
  Receive Date: 20180920
  Receipt Date: 20181016
  Transmission Date: 20190204
  Serious: Yes (Hospitalization)
  Sender: FDA-Public Use
  Company Number: ES-009507513-1809ESP006149

PATIENT
  Age: 54 Year
  Sex: Male
  Weight: 66 kg

DRUGS (3)
  1. ZEPATIER [Suspect]
     Active Substance: ELBASVIR\GRAZOPREVIR
     Indication: HEPATITIS C
     Dosage: ONE TABLET, EVERY 24 HOURS
     Route: 048
     Dates: start: 20180723, end: 20181014
  2. OMEPRAZOLE. [Concomitant]
     Active Substance: OMEPRAZOLE
     Indication: EROSIVE DUODENITIS
     Dosage: 20 MG/12 HR
     Route: 048
     Dates: start: 20180611
  3. CARVEDILOL. [Concomitant]
     Active Substance: CARVEDILOL
     Indication: VARICES OESOPHAGEAL
     Dosage: 6.25 MG/12 HR
     Route: 048
     Dates: start: 20180611

REACTIONS (3)
  - Portal vein thrombosis [Not Recovered/Not Resolved]
  - Mesenteric vein thrombosis [Not Recovered/Not Resolved]
  - Splenic vein thrombosis [Not Recovered/Not Resolved]

NARRATIVE: CASE EVENT DATE: 20180824
